FAERS Safety Report 4932629-6 (Version None)
Quarter: 2006Q1

REPORT INFORMATION
  Report Type: 
  Country: None (occurrence: None)
  Receive Date: 20060301
  Receipt Date: 20060220
  Transmission Date: 20060701
  Serious: Yes (Hospitalization)
  Sender: FDA-Public Use
  Company Number: 200610224BNE

PATIENT
  Age: 65 Year

DRUGS (2)
  1. NIFEDIPINE [Suspect]
     Indication: HYPERTENSION
     Dosage: 40 MG, TOTAL DAILY, ORAL
     Route: 048
     Dates: start: 20030101
  2. BENDROFLUAZIDE [Concomitant]

REACTIONS (2)
  - OEDEMA [None]
  - SKIN ULCER [None]
